FAERS Safety Report 5036222-9 (Version None)
Quarter: 2006Q2

REPORT INFORMATION
  Report Type: 
  Country: None (occurrence: None)
  Receive Date: 20060531
  Receipt Date: 20050307
  Transmission Date: 20061013
  Serious: Yes (Other)
  Sender: FDA-Public Use
  Company Number: US-ELI_LILLY_AND_CO-US_05

PATIENT
  Age: 65 Year
  Sex: Female

DRUGS (2)
  1. PERMAX [Suspect]
     Indication: PARKINSON'S DISEASE
     Dosage: 1 MG;TID;PO
     Route: 048
     Dates: start: 20000601, end: 20041101
  2. SINEMET [Concomitant]

REACTIONS (5)
  - AORTIC VALVE INCOMPETENCE [None]
  - AORTIC VALVE STENOSIS [None]
  - MITRAL VALVE INCOMPETENCE [None]
  - MITRAL VALVE STENOSIS [None]
  - PULMONARY HYPERTENSION [None]
